FAERS Safety Report 24581302 (Version 2)
Quarter: 2024Q4

REPORT INFORMATION
  Report Type: Spontaneous
  Country: US (occurrence: US)
  Receive Date: 20241105
  Receipt Date: 20241122
  Transmission Date: 20250115
  Serious: Yes (Hospitalization)
  Sender: TEVA
  Company Number: US-TEVA-VS-3260466

PATIENT
  Sex: Female
  Weight: 22 kg

DRUGS (3)
  1. ALBUTEROL [Suspect]
     Active Substance: ALBUTEROL
     Indication: Bronchial hyperreactivity
     Dosage: NEBULISED
     Route: 065
  2. TERBUTALINE [Suspect]
     Active Substance: TERBUTALINE
     Indication: Bronchial hyperreactivity
     Dosage: 10  G/KG
     Route: 040
  3. TERBUTALINE [Suspect]
     Active Substance: TERBUTALINE
     Indication: Bronchial hyperreactivity
     Dosage: 454.5  G/KG
     Route: 040

REACTIONS (6)
  - Pulse pressure increased [Recovering/Resolving]
  - Off label use [Unknown]
  - Hypokalaemia [Recovered/Resolved]
  - Accidental overdose [Unknown]
  - Hyperlactacidaemia [Recovering/Resolving]
  - Drug ineffective [Unknown]
